FAERS Safety Report 15065778 (Version 1)
Quarter: 2018Q2

REPORT INFORMATION
  Report Type: Spontaneous
  Country: US (occurrence: US)
  Receive Date: 20180626
  Receipt Date: 20180626
  Transmission Date: 20180711
  Serious: No
  Sender: FDA-Public Use
  Company Number: US-GLENMARK PHARMACEUTICALS-2018GMK034011

PATIENT

DRUGS (2)
  1. ALCLOMETASONE DIPROPIONATE. [Suspect]
     Active Substance: ALCLOMETASONE DIPROPIONATE
     Indication: RASH PRURITIC
     Dosage: UNK
     Route: 065
  2. ALCLOMETASONE DIPROPIONATE. [Suspect]
     Active Substance: ALCLOMETASONE DIPROPIONATE
     Indication: SKIN BURNING SENSATION

REACTIONS (2)
  - Skin burning sensation [Unknown]
  - Pruritus [Unknown]

NARRATIVE: CASE EVENT DATE: 20180326
